FAERS Safety Report 8746054 (Version 2)
Quarter: 2012Q4

REPORT INFORMATION
  Report Type: 
  Country: US (occurrence: US)
  Receive Date: 20120827
  Receipt Date: 20121009
  Transmission Date: 20130627
  Serious: No
  Sender: FDA-Public Use
  Company Number: US-JNJFOC-20120802172

PATIENT
  Sex: Male
  Weight: 78.56 kg

DRUGS (5)
  1. INVEGA SUSTENNA [Suspect]
     Indication: SCHIZOPHRENIA
     Route: 030
  2. INVEGA SUSTENNA [Suspect]
     Indication: SCHIZOPHRENIA
     Route: 030
  3. INVEGA SUSTENNA [Suspect]
     Indication: SCHIZOPHRENIA
     Route: 030
     Dates: start: 200912
  4. LAMICTAL [Concomitant]
     Indication: PRODUCT USED FOR UNKNOWN INDICATION
     Route: 065
  5. RISPERDAL [Concomitant]
     Indication: HALLUCINATION
     Route: 065

REACTIONS (3)
  - Sluggishness [Recovered/Resolved]
  - Feeling abnormal [Recovered/Resolved]
  - Hallucinations, mixed [Unknown]
